FAERS Safety Report 8202770-3 (Version None)
Quarter: 2012Q1

REPORT INFORMATION
  Report Type: 
  Country: None (occurrence: None)
  Receive Date: 20120312
  Receipt Date: 20120312
  Transmission Date: 20120608
  Serious: Yes (Other)
  Sender: FDA-Public Use
  Company Number: None

PATIENT
  Sex: Male
  Weight: 80.285 kg

DRUGS (2)
  1. VISTARIL [Suspect]
     Indication: PAIN
     Dosage: 50.0 MG
     Route: 042
     Dates: start: 20120302, end: 20120302
  2. VISTARIL [Concomitant]
     Dosage: 50 MG
     Route: 042
     Dates: start: 20120302, end: 20120302

REACTIONS (1)
  - NO ADVERSE EVENT [None]
